FAERS Safety Report 20230023 (Version 1)
Quarter: 2021Q4

REPORT INFORMATION
  Report Type: Spontaneous
  Country: DE (occurrence: DE)
  Receive Date: 20211226
  Receipt Date: 20211226
  Transmission Date: 20220303
  Serious: Yes (Hospitalization)
  Sender: FDA-Public Use
  Company Number: DE-NOVARTISPH-NVSC2021DE289773

PATIENT
  Age: 80 Year
  Sex: Male

DRUGS (14)
  1. AMITRIPTYLINE [Suspect]
     Active Substance: AMITRIPTYLINE
     Indication: Product used for unknown indication
     Dosage: 40 MG/ML, F?NF TROPFEN ZUR NACHT, TROPFEN
     Route: 048
  2. BISOPROLOL [Suspect]
     Active Substance: BISOPROLOL
     Indication: Product used for unknown indication
     Dosage: 5 MG, 1-0-1-0, RETARD-TABLETTEN
     Route: 048
  3. KALINOR [Concomitant]
     Indication: Product used for unknown indication
     Dosage: 600 MG, 2-0-2-0, TABLETTEN
     Route: 048
  4. TORSEMIDE [Concomitant]
     Active Substance: TORSEMIDE
     Indication: Product used for unknown indication
     Dosage: 10 MG, 1-0-0-0, TABLETTEN
     Route: 048
  5. ATORVASTATIN [Concomitant]
     Active Substance: ATORVASTATIN
     Indication: Product used for unknown indication
     Dosage: 20 MG, 0-0-1-0, TABLETTEN
     Route: 048
  6. PREDNISOLONE [Concomitant]
     Active Substance: PREDNISOLONE
     Indication: Product used for unknown indication
     Dosage: 5 MG, 1-0-0-0, TABLETTEN
     Route: 048
  7. CANDESARTAN [Concomitant]
     Active Substance: CANDESARTAN
     Indication: Product used for unknown indication
     Dosage: 16 MG, 1-0-0-0, TABLETTEN
     Route: 048
  8. DEKRISTOL NEU [Concomitant]
     Indication: Product used for unknown indication
     Dosage: 2000 IE, EINMAL PRO WOCHE, KAPSELN
     Route: 048
  9. LEUPROLIDE ACETATE [Concomitant]
     Active Substance: LEUPROLIDE ACETATE
     Indication: Product used for unknown indication
     Dosage: 5 MG, ALLE DREI MONATE, FERTIGSPRITZEN
     Route: 030
  10. CAPROS [Concomitant]
     Indication: Product used for unknown indication
     Dosage: 10 MG, BIS ZU SECHSMAL PRO TAG, TABLETTEN
     Route: 048
  11. EDOXABAN [Concomitant]
     Active Substance: EDOXABAN
     Indication: Product used for unknown indication
     Dosage: TABLETTEN
     Route: 048
  12. PANTOPRAZOLE SODIUM [Concomitant]
     Active Substance: PANTOPRAZOLE SODIUM
     Indication: Product used for unknown indication
     Dosage: 20 MG, 1-0-0-0, TABLETTEN
     Route: 048
  13. ZYTIGA [Concomitant]
     Active Substance: ABIRATERONE ACETATE
     Indication: Product used for unknown indication
     Dosage: 500 MG, 2-0-0-0, TABLETTEN
     Route: 048
  14. LACTULOSE [Concomitant]
     Active Substance: LACTULOSE
     Indication: Product used for unknown indication
     Dosage: BEI BEDARF, SAFT
     Route: 048

REACTIONS (4)
  - Sinus node dysfunction [Unknown]
  - Cold sweat [Unknown]
  - Nausea [Unknown]
  - Dyspnoea [Unknown]
